FAERS Safety Report 12206434 (Version 1)
Quarter: 2016Q1

REPORT INFORMATION
  Report Type: Spontaneous
  Country: US (occurrence: US)
  Receive Date: 20160324
  Receipt Date: 20160324
  Transmission Date: 20160526
  Serious: No
  Sender: FDA-Public Use
  Company Number: US-PFIZER INC-2016121718

PATIENT
  Age: 35 Year
  Sex: Female

DRUGS (1)
  1. EMBEDA [Suspect]
     Active Substance: MORPHINE SULFATE\NALTREXONE HYDROCHLORIDE
     Dosage: 0.8 MG, UNK
     Dates: start: 20160131

REACTIONS (3)
  - Pruritus [Unknown]
  - Pharyngeal oedema [Unknown]
  - Contraindicated drug administered [Unknown]
